FAERS Safety Report 7978993-5 (Version None)
Quarter: 2011Q4

REPORT INFORMATION
  Report Type: 
  Country: None (occurrence: None)
  Receive Date: 20111201
  Receipt Date: 20111129
  Transmission Date: 20120403
  Serious: Yes (Other)
  Sender: FDA-Public Use
  Company Number: ACO_28128_2011

PATIENT
  Age: 50 Year
  Sex: Male

DRUGS (5)
  1. FISH OIL (FISH OIL) [Concomitant]
  2. ERGOCALCIFEROL [Concomitant]
  3. BETASERON /01229701/ (ALUBMIN HUMAN, GLUCOSE, INTERFERON BETA) [Concomitant]
  4. AMPYRA [Suspect]
     Indication: MULTIPLE SCLEROSIS
     Dosage: 10 M, Q 12 HRS, ORAL
     Route: 048
     Dates: start: 20110501, end: 20110801
  5. TAMSULOSIN HCL [Concomitant]

REACTIONS (2)
  - CONVULSION [None]
  - MULTIPLE SCLEROSIS RELAPSE [None]
